FAERS Safety Report 9106653 (Version 1)
Quarter: 2013Q1

REPORT INFORMATION
  Report Type: Spontaneous
  Country: NL (occurrence: NL)
  Receive Date: 20130221
  Receipt Date: 20130221
  Transmission Date: 20140127
  Serious: Yes (Hospitalization)
  Sender: FDA-Public Use
  Company Number: PHHY2013NL016725

PATIENT
  Age: 66 Year
  Sex: Male

DRUGS (4)
  1. ZOMETA [Suspect]
     Indication: PROSTATE CANCER METASTATIC
     Dosage: 4 MG/100ML 1X / 84 DAYS
     Route: 041
  2. ZOMETA [Suspect]
     Dosage: 4 MG/100ML 1X / 84 DAYS
     Route: 041
     Dates: start: 20100928
  3. ZOMETA [Suspect]
     Dosage: 4 MG/100ML 1X / 84 DAYS
     Route: 041
     Dates: start: 20121120
  4. ZOMETA [Suspect]
     Dosage: 4 MG/100ML 1X / 84 DAYS
     Route: 041
     Dates: start: 20130212

REACTIONS (1)
  - Myocardial infarction [Recovered/Resolved with Sequelae]
